FAERS Safety Report 7355290-2 (Version None)
Quarter: 2011Q1

REPORT INFORMATION
  Report Type: 
  Country: None (occurrence: None)
  Receive Date: 20110316
  Receipt Date: 20110310
  Transmission Date: 20110831
  Serious: Yes (Hospitalization, Other)
  Sender: FDA-Public Use
  Company Number: BR-PFIZER INC-2011031945

PATIENT
  Age: 53 Year
  Sex: Female
  Weight: 63 kg

DRUGS (5)
  1. LYRICA [Suspect]
     Indication: CARPAL TUNNEL SYNDROME
     Dosage: 150 MG, 1X/DAY
     Route: 048
     Dates: start: 20110209, end: 20110210
  2. LYRICA [Suspect]
  3. LYRICA [Suspect]
     Indication: PAIN
  4. LYRICA [Suspect]
     Indication: NEUROPATHY PERIPHERAL
  5. LYRICA [Suspect]
     Indication: BURSITIS

REACTIONS (5)
  - VOMITING [None]
  - VERTIGO [None]
  - MALAISE [None]
  - HEADACHE [None]
  - COUGH [None]
